FAERS Safety Report 13967359 (Version 1)
Quarter: 2017Q3

REPORT INFORMATION
  Report Type: Spontaneous
  Country: US (occurrence: US)
  Receive Date: 20170914
  Receipt Date: 20170914
  Transmission Date: 20171128
  Serious: No
  Sender: FDA-Public Use
  Company Number: US-009507513-1708USA007438

PATIENT

DRUGS (2)
  1. GARDASIL 9 [Suspect]
     Active Substance: HUMAN PAPILLOMAVIRUS TYPE 11 L1 CAPSID PROTEIN ANTIGEN\HUMAN PAPILLOMAVIRUS TYPE 16 L1 CAPSID PROTEIN ANTIGEN\HUMAN PAPILLOMAVIRUS TYPE 18 L1 CAPSID PROTEIN ANTIGEN\HUMAN PAPILLOMAVIRUS TYPE 31 L1 CAPSID PROTEIN ANTIGEN\HUMAN PAPILLOMAVIRUS TYPE 33 L1 CAPSID PROTEIN ANTIGEN\HUMAN PAPILLOMAVIRUS TYPE
     Indication: PROPHYLAXIS
  2. STERILE DILUENT [Suspect]
     Active Substance: WATER
     Dosage: UNK

REACTIONS (2)
  - Product storage error [Unknown]
  - No adverse event [Unknown]
